FAERS Safety Report 11103927 (Version 1)
Quarter: 2015Q2

REPORT INFORMATION
  Report Type: Spontaneous
  Country: TR (occurrence: None)
  Receive Date: 20150507
  Receipt Date: 20150507
  Transmission Date: 20150821
  Serious: Yes (Hospitalization)
  Sender: FDA-Public Use
  Company Number: TR-DEXPHARM-20150297

PATIENT
  Age: 51 Year
  Sex: Male

DRUGS (1)
  1. DICLOFENAC [Suspect]
     Active Substance: DICLOFENAC
     Indication: ARTHRALGIA

REACTIONS (5)
  - Lacrimation increased [None]
  - Hypersensitivity [None]
  - Kounis syndrome [None]
  - Chest pain [None]
  - Electrocardiogram ST segment elevation [None]
